FAERS Safety Report 9197686 (Version 2)
Quarter: 2013Q1

REPORT INFORMATION
  Report Type: Spontaneous
  Country: US (occurrence: US)
  Receive Date: 20130328
  Receipt Date: 20130328
  Transmission Date: 20140127
  Serious: No
  Sender: FDA-Public Use
  Company Number: US-GALDERMA-US-GDP-12414834

PATIENT
  Age: 58 Year
  Sex: Female

DRUGS (4)
  1. CLOBEX [Suspect]
     Indication: PSORIASIS
     Route: 061
     Dates: start: 201207
  2. CLOBEX [Suspect]
     Route: 061
     Dates: start: 2007
  3. NON-MEDICATED SHAMPOOS [Concomitant]
     Indication: PSORIASIS
     Route: 061
  4. NEUTROGENIA CONDITIONER [Concomitant]
     Indication: PSORIASIS
     Route: 061

REACTIONS (3)
  - Alopecia [Recovered/Resolved]
  - Expired drug administered [Not Recovered/Not Resolved]
  - Drug ineffective [Not Recovered/Not Resolved]
